FAERS Safety Report 7408304-5 (Version None)
Quarter: 2011Q2

REPORT INFORMATION
  Report Type: 
  Country: None (occurrence: None)
  Receive Date: 20110412
  Receipt Date: 20110404
  Transmission Date: 20111010
  Serious: Yes (Hospitalization, Other)
  Sender: FDA-Public Use
  Company Number: BE-NOVOPROD-323922

PATIENT
  Age: 49 Year
  Sex: Male
  Weight: 124.9 kg

DRUGS (10)
  1. SEROXAT [Concomitant]
     Dosage: 1 TAB, QD
  2. ZYLORIC [Concomitant]
     Dosage: 100 MG, QD
  3. OMEPRAZOLE [Concomitant]
     Dosage: 20 MG, QD
  4. INDERAL RETARD [Concomitant]
     Dosage: 160 MG, QD
  5. VICTOZA [Suspect]
     Indication: TYPE 2 DIABETES MELLITUS
     Dosage: 0.6 MG, QD
     Route: 065
     Dates: start: 20100801
  6. ASAFLOW [Concomitant]
     Dosage: 160 MG, QD
  7. PRAVASTATIN [Concomitant]
     Dosage: 40 MG, QD
     Route: 065
  8. TELMISARTAN [Concomitant]
     Dosage: 80/12.5
  9. VICTOZA [Suspect]
     Dosage: 1.2 MG, QD
     Route: 065
     Dates: start: 20110110, end: 20110207
  10. METFORMAX [Concomitant]
     Dosage: 3 X 0.5 TAB/DAY
     Route: 065

REACTIONS (3)
  - LIPASE INCREASED [None]
  - PANNICULITIS [None]
  - BLOOD GLUCOSE INCREASED [None]
